FAERS Safety Report 9506461 (Version 1)
Quarter: 2013Q3

REPORT INFORMATION
  Report Type: Spontaneous
  Country: US (occurrence: US)
  Receive Date: 20130906
  Receipt Date: 20130906
  Transmission Date: 20140515
  Serious: Yes (Other)
  Sender: FDA-Public Use
  Company Number: PHHY2013US095506

PATIENT
  Age: 12 Year
  Sex: Female

DRUGS (5)
  1. HYDROXYCHLOROQUINE [Suspect]
     Indication: DERMATITIS HERPETIFORMIS
  2. METHOTREXATE [Suspect]
     Indication: DERMATITIS HERPETIFORMIS
  3. MYCOPHENOLATE [Suspect]
     Indication: DERMATITIS HERPETIFORMIS
  4. IMMUNOGLOBULINS [Suspect]
     Indication: DERMATITIS HERPETIFORMIS
     Route: 042
  5. TRIAMCINOLONE [Concomitant]
     Indication: DERMATITIS HERPETIFORMIS

REACTIONS (2)
  - Pigmentation disorder [Unknown]
  - Drug ineffective [Unknown]
